FAERS Safety Report 9275324 (Version 1)
Quarter: 2013Q2

REPORT INFORMATION
  Report Type: Spontaneous
  Country: US (occurrence: None)
  Receive Date: 20130501
  Receipt Date: 20130501
  Transmission Date: 20140414
  Serious: Yes (Disabling, Other)
  Sender: FDA-Public Use
  Company Number: None

PATIENT
  Age: 56 Year
  Sex: Female
  Weight: 61.24 kg

DRUGS (2)
  1. PRAVASTATIN [Suspect]
     Indication: BLOOD CHOLESTEROL
     Dosage: 1X @ NIGHT
     Route: 048
     Dates: start: 200902, end: 20130409
  2. GEMFIBROZIL [Suspect]
     Indication: BLOOD TRIGLYCERIDES
     Dosage: AM/PM
     Route: 048
     Dates: start: 200902, end: 20130411

REACTIONS (6)
  - Muscular weakness [None]
  - Fatigue [None]
  - Balance disorder [None]
  - Impaired self-care [None]
  - Activities of daily living impaired [None]
  - Impaired work ability [None]
